FAERS Safety Report 17956250 (Version 1)
Quarter: 2020Q2

REPORT INFORMATION
  Report Type: Spontaneous
  Country: FR (occurrence: FR)
  Receive Date: 20200629
  Receipt Date: 20200629
  Transmission Date: 20200714
  Serious: Yes (Hospitalization)
  Sender: FDA-Public Use
  Company Number: FR-ACCORD-187537

PATIENT
  Age: 79 Year
  Sex: Female
  Weight: 75 kg

DRUGS (11)
  1. DERMOVAL [Concomitant]
     Route: 003
     Dates: start: 202002
  2. LAROXYL [Suspect]
     Active Substance: AMITRIPTYLINE HYDROCHLORIDE
     Indication: PRODUCT USED FOR UNKNOWN INDICATION
     Route: 048
     Dates: start: 202002
  3. ELIQUIS [Concomitant]
     Active Substance: APIXABAN
     Indication: ATRIAL FIBRILLATION
     Route: 048
  4. ORAMORPH [Suspect]
     Active Substance: MORPHINE SULFATE
     Indication: PAIN
     Route: 048
     Dates: start: 202003, end: 20200428
  5. EMEND [Suspect]
     Active Substance: APREPITANT
     Indication: NAUSEA
     Route: 048
     Dates: start: 20200428, end: 20200430
  6. MIRTAZAPINE. [Concomitant]
     Active Substance: MIRTAZAPINE
     Route: 048
  7. SPECIAFOLDINE [Concomitant]
     Active Substance: FOLIC ACID
     Indication: VITAMIN SUPPLEMENTATION
     Route: 048
     Dates: start: 202002, end: 20200504
  8. METHOTREXATE. [Suspect]
     Active Substance: METHOTREXATE
     Indication: CUTANEOUS T-CELL LYMPHOMA
     Route: 058
     Dates: start: 202002, end: 20200501
  9. ZYRTEC [Suspect]
     Active Substance: CETIRIZINE HYDROCHLORIDE
     Indication: PRURITUS
     Route: 048
     Dates: start: 202003, end: 20200504
  10. AERIUS (DESLORATADINE) [Suspect]
     Active Substance: DESLORATADINE
     Indication: PRURITUS
     Route: 048
     Dates: start: 202003, end: 20200504
  11. NATURA [Concomitant]
     Dosage: UNKNOWN COLD CREAM ROCHE POSAY, CREAM
     Route: 003
     Dates: start: 202002

REACTIONS (1)
  - Confusional state [Recovering/Resolving]

NARRATIVE: CASE EVENT DATE: 202004
